FAERS Safety Report 21510204 (Version 2)
Quarter: 2023Q2

REPORT INFORMATION
  Report Type: Report from Study
  Country: US (occurrence: US)
  Receive Date: 20221026
  Receipt Date: 20230518
  Transmission Date: 20230721
  Serious: Yes (Hospitalization, Other)
  Sender: FDA-Public Use
  Company Number: US-JAZZ-2022-US-009111

PATIENT
  Age: 44 Year
  Sex: Female

DRUGS (22)
  1. XYWAV [Suspect]
     Active Substance: CALCIUM OXYBATE\MAGNESIUM OXYBATE\POTASSIUM OXYBATE\SODIUM OXYBATE
     Indication: Narcolepsy
     Dosage: 2.25 GRAM, BID AT BEDTIME
     Route: 048
     Dates: start: 202110
  2. XYWAV [Suspect]
     Active Substance: CALCIUM OXYBATE\MAGNESIUM OXYBATE\POTASSIUM OXYBATE\SODIUM OXYBATE
     Indication: Cataplexy
     Dosage: 2 GRAM, BID
  3. XYWAV [Suspect]
     Active Substance: CALCIUM OXYBATE\MAGNESIUM OXYBATE\POTASSIUM OXYBATE\SODIUM OXYBATE
     Indication: Somnolence
  4. OXYCODONE AND ACETAMINOPHEN [Suspect]
     Active Substance: ACETAMINOPHEN\OXYCODONE HYDROCHLORIDE
     Indication: Product used for unknown indication
     Dosage: 7.5-325
     Dates: start: 20220928
  5. MINERALS\VITAMINS [Concomitant]
     Active Substance: MINERALS\VITAMINS
     Indication: Product used for unknown indication
     Dosage: UNK
     Dates: start: 20160106
  6. MAGNESIUM 6 [Concomitant]
     Indication: Product used for unknown indication
     Dosage: UNK
  7. MAGNESIUM 6 [Concomitant]
     Dosage: UNK
  8. MAGNESIUM 6 [Concomitant]
     Dosage: UNK
  9. MAGNESIUM 6 [Concomitant]
     Dosage: UNK
  10. BEYAZ [Concomitant]
     Active Substance: DROSPIRENONE\ETHINYL ESTRADIOL\LEVOMEFOLATE CALCIUM
     Indication: Product used for unknown indication
     Dosage: UNK
     Dates: start: 20210713
  11. JAMP OMEPRAZOLE DR [Concomitant]
     Indication: Dyspepsia
     Dosage: UNK
     Route: 048
     Dates: start: 20210621
  12. SUNOSI [Concomitant]
     Active Substance: SOLRIAMFETOL
     Indication: Product used for unknown indication
     Dosage: UNK
     Dates: start: 20210913
  13. DICLOFENAC [Concomitant]
     Active Substance: DICLOFENAC
     Indication: Arthritis
     Dosage: UNK
  14. DICLOFENAC [Concomitant]
     Active Substance: DICLOFENAC
     Dosage: UNK
  15. DICLOFENAC [Concomitant]
     Active Substance: DICLOFENAC
     Dosage: UNK
  16. DICLOFENAC [Concomitant]
     Active Substance: DICLOFENAC
     Dosage: UNK
  17. MEGARED JOINT CARE [Concomitant]
     Indication: Product used for unknown indication
     Dosage: UNK
  18. MEGARED JOINT CARE [Concomitant]
     Dosage: UNK
  19. MEGARED JOINT CARE [Concomitant]
     Dosage: UNK
  20. MEGARED JOINT CARE [Concomitant]
     Dosage: UNK
  21. TIZANIDINE HYDROCHLORIDE [Concomitant]
     Active Substance: TIZANIDINE HYDROCHLORIDE
     Indication: Product used for unknown indication
     Dosage: UNK
     Dates: start: 20220928
  22. MOMETASONE FUROATE [Concomitant]
     Active Substance: MOMETASONE FUROATE
     Indication: Product used for unknown indication

REACTIONS (16)
  - Vertebral body replacement [Unknown]
  - Muscle spasms [Unknown]
  - Condition aggravated [Unknown]
  - Heart rate irregular [Unknown]
  - COVID-19 [Unknown]
  - Brain fog [Unknown]
  - Neuralgia [Unknown]
  - Headache [Recovered/Resolved]
  - Blood pressure increased [Unknown]
  - Sleep terror [Unknown]
  - Nasopharyngitis [Unknown]
  - Bronchitis [Recovered/Resolved]
  - Anxiety [Recovering/Resolving]
  - Superficial injury of eye [Unknown]
  - Intentional dose omission [Unknown]
  - Incorrect dosage administered [Unknown]

NARRATIVE: CASE EVENT DATE: 20220915
